FAERS Safety Report 4923328-5 (Version None)
Quarter: 2006Q1

REPORT INFORMATION
  Report Type: 
  Country: None (occurrence: None)
  Receive Date: 20060227
  Receipt Date: 20060216
  Transmission Date: 20060701
  Serious: Yes (Hospitalization)
  Sender: FDA-Public Use
  Company Number: AT-JNJFOC-20060204445

PATIENT
  Sex: Male
  Weight: 68 kg

DRUGS (17)
  1. BLINDED; INFLIXIMAB, RECOMBINANT [Suspect]
     Route: 042
  2. BLINDED; INFLIXIMAB, RECOMBINANT [Suspect]
     Indication: CROHN'S DISEASE
     Route: 042
  3. PLACEBO [Suspect]
     Route: 042
  4. PLACEBO [Suspect]
     Indication: CROHN'S DISEASE
     Route: 042
  5. AZATHIOPRINE [Suspect]
     Indication: CROHN'S DISEASE
     Route: 048
  6. PLACEBO [Suspect]
     Route: 048
  7. MESALAMINE [Concomitant]
     Indication: CROHN'S DISEASE
     Route: 048
  8. LANSOPRAZOL [Concomitant]
     Route: 048
  9. SALOFALK [Concomitant]
  10. APREDNISLON [Concomitant]
  11. APREDNISLON [Concomitant]
  12. APREDNISLON [Concomitant]
  13. APREDNISLON [Concomitant]
  14. APREDNISLON [Concomitant]
  15. AGOPTON [Concomitant]
  16. ANAEROBEX [Concomitant]
  17. CIPROXIN [Concomitant]

REACTIONS (2)
  - ABDOMINAL ABSCESS [None]
  - ABDOMINAL NEOPLASM [None]
